FAERS Safety Report 22175616 (Version 1)
Quarter: 2023Q2

REPORT INFORMATION
  Report Type: Spontaneous
  Country: FR (occurrence: FR)
  Receive Date: 20230405
  Receipt Date: 20230405
  Transmission Date: 20230721
  Serious: Yes (Other)
  Sender: FDA-Public Use
  Company Number: None

PATIENT
  Age: 18 Year
  Sex: Female
  Weight: 51 kg

DRUGS (10)
  1. VALGANCICLOVIR HYDROCHLORIDE [Suspect]
     Active Substance: VALGANCICLOVIR HYDROCHLORIDE
     Indication: Renal transplant
     Dosage: DAILY DOSE: 450 MILLIGRAM
     Route: 048
     Dates: start: 20230105
  2. MYFORTIC [Suspect]
     Active Substance: MYCOPHENOLATE SODIUM
     Indication: Renal transplant
     Dosage: TAKEN 4 TIMES DAILY
     Route: 048
     Dates: start: 20230105
  3. ENVARSUS XR [Suspect]
     Active Substance: TACROLIMUS
     Indication: Antiviral prophylaxis
     Dosage: TAKEN 3 TIMES DAILY
     Route: 048
     Dates: start: 20230105
  4. OXYBUTYNIN [Concomitant]
     Active Substance: OXYBUTYNIN
     Dosage: TAKEN TWICE DAILY ?DAILY DOSE: 10 MILLIGRAM
     Route: 048
  5. PREDNISONE [Concomitant]
     Active Substance: PREDNISONE
     Dosage: DAILY DOSE: 5 MILLIGRAM
     Route: 048
  6. SULFAMETHOXAZOLE\TRIMETHOPRIM [Concomitant]
     Active Substance: SULFAMETHOXAZOLE\TRIMETHOPRIM
     Dosage: 0.5 TABS 3 TIMES EVERY 7 DAYS
  7. Sodium alginate / sodium bicarbonate [Concomitant]
     Dosage: 500 MG/267 MG PO: TAKEN TWICE DAILY
     Route: 048
  8. FOLIC ACID [Concomitant]
     Active Substance: FOLIC ACID
     Dosage: DAILY DOSE: 5 MILLIGRAM
     Route: 048
  9. NICOTINE [Concomitant]
     Active Substance: NICOTINE
     Route: 062
  10. AMLODIPINE BESYLATE [Concomitant]
     Active Substance: AMLODIPINE BESYLATE
     Dosage: DAILY DOSE: 5 MILLIGRAM
     Route: 048

REACTIONS (1)
  - Alopecia [Not Recovered/Not Resolved]

NARRATIVE: CASE EVENT DATE: 20230207
